FAERS Safety Report 20225127 (Version 1)
Quarter: 2021Q4

REPORT INFORMATION
  Report Type: Spontaneous
  Country: US (occurrence: US)
  Receive Date: 20211223
  Receipt Date: 20211223
  Transmission Date: 20220303
  Serious: Yes (Hospitalization)
  Sender: FDA-Public Use
  Company Number: US-BRISTOL-MYERS SQUIBB COMPANY-BMS-2021-140630

PATIENT
  Age: 35 Year
  Sex: Female
  Weight: 63 kg

DRUGS (5)
  1. ELIQUIS [Suspect]
     Active Substance: APIXABAN
     Indication: Product used for unknown indication
     Dosage: UNK
     Route: 065
  2. REMODULIN [Suspect]
     Active Substance: TREPROSTINIL
     Indication: Pulmonary arterial hypertension
     Dosage: 0.014 MICROGRAM/KILOGRAM
     Route: 058
     Dates: start: 20211207
  3. OXYGEN [Suspect]
     Active Substance: OXYGEN
     Indication: Product used for unknown indication
     Dosage: AT 1-2 LPM
     Route: 065
  4. OPSUMIT [Concomitant]
     Active Substance: MACITENTAN
     Indication: Product used for unknown indication
     Dosage: UNK
     Route: 065
     Dates: start: 2021
  5. ADEMPAS [Concomitant]
     Active Substance: RIOCIGUAT
     Indication: Product used for unknown indication
     Dosage: 1 MILLIGRAM, TID
     Route: 065
     Dates: start: 2021

REACTIONS (4)
  - Epistaxis [Unknown]
  - Nasal dryness [Unknown]
  - Dyspepsia [Unknown]
  - Heart rate increased [Unknown]

NARRATIVE: CASE EVENT DATE: 20211201
